FAERS Safety Report 11591685 (Version 2)
Quarter: 2017Q3

REPORT INFORMATION
  Report Type: Spontaneous
  Country: US (occurrence: US)
  Receive Date: 20151005
  Receipt Date: 20170929
  Transmission Date: 20171127
  Serious: No
  Sender: FDA-Public Use
  Company Number: US-NOVEN PHARMACEUTICALS, INC.-US2015000293

PATIENT

DRUGS (4)
  1. COMBIPATCH [Suspect]
     Active Substance: ESTRADIOL\NORETHINDRONE ACETATE
     Indication: HOT FLUSH
     Dosage: 0.05/0.14 MG, 1/WEEK
     Route: 062
     Dates: start: 2010
  2. COMBIPATCH [Suspect]
     Active Substance: ESTRADIOL\NORETHINDRONE ACETATE
     Indication: NIGHT SWEATS
     Dosage: CUTTING THE PATCHES IN HALF, UNKNOWN
     Route: 062
     Dates: start: 201504
  3. SYNTHROID [Concomitant]
     Active Substance: LEVOTHYROXINE SODIUM
  4. COMBIPATCH [Suspect]
     Active Substance: ESTRADIOL\NORETHINDRONE ACETATE
     Dosage: 50/140 MG, 1/WEEK
     Route: 062
     Dates: end: 20161201

REACTIONS (6)
  - Inappropriate schedule of drug administration [Recovered/Resolved]
  - Drug dose omission [Not Recovered/Not Resolved]
  - Vaginal haemorrhage [Unknown]
  - Off label use [Unknown]
  - Muscle spasms [Unknown]
  - Wrong technique in product usage process [Recovered/Resolved]

NARRATIVE: CASE EVENT DATE: 201504
